FAERS Safety Report 5241268-1 (Version None)
Quarter: 2007Q1

REPORT INFORMATION
  Report Type: 
  Country: None (occurrence: None)
  Receive Date: 20070220
  Receipt Date: 20070208
  Transmission Date: 20070707
  Serious: Yes (Hospitalization)
  Sender: FDA-Public Use
  Company Number: DE-BRISTOL-MYERS SQUIBB COMPANY-13674346

PATIENT
  Age: 38 Year
  Sex: Male
  Weight: 66 kg

DRUGS (17)
  1. CYCLOPHOSPHAMIDE [Suspect]
  2. BLEOMYCIN SULFATE [Suspect]
  3. EPREX [Suspect]
     Indication: ANAEMIA OF MALIGNANT DISEASE
     Route: 058
     Dates: start: 20061104
  4. BLINDED: PLACEBO [Suspect]
     Indication: ANAEMIA OF MALIGNANT DISEASE
     Route: 058
     Dates: start: 20061104
  5. ADRIAMYCIN PFS [Suspect]
  6. ETOPOSIDE [Suspect]
  7. VINCRISTINE [Suspect]
  8. PROCARBAZINE [Suspect]
  9. PREDNISONE [Suspect]
  10. OTRIVIN [Concomitant]
  11. NEXIUM [Concomitant]
     Indication: GASTROINTESTINAL DISORDER
     Route: 048
  12. BACTRIM [Concomitant]
  13. ZOFRAN ZYDIS [Concomitant]
     Route: 060
  14. FERRO SANOL [Concomitant]
     Route: 048
  15. KALINOR-RETARD P [Concomitant]
     Route: 048
  16. COTRIM DS [Concomitant]
  17. ZOFRAN ZYDIS [Concomitant]
     Route: 060

REACTIONS (2)
  - HERPES ZOSTER [None]
  - PULMONARY MYCOSIS [None]
